FAERS Safety Report 21284417 (Version 8)
Quarter: 2024Q1

REPORT INFORMATION
  Report Type: Spontaneous
  Country: CA (occurrence: CA)
  Receive Date: 20220902
  Receipt Date: 20240104
  Transmission Date: 20240410
  Serious: Yes (Other)
  Sender: FDA-Public Use
  Company Number: CA-CELLTRION INC.-2022CA004379

PATIENT

DRUGS (13)
  1. INFLECTRA [Suspect]
     Active Substance: INFLIXIMAB-DYYB
     Indication: Crohn^s disease
     Dosage: 500 MG, EVERY 4 WEEKS
     Route: 042
     Dates: start: 20181207
  2. INFLECTRA [Suspect]
     Active Substance: INFLIXIMAB-DYYB
     Dosage: 500 MG, EVERY 4 WEEKS
     Route: 042
     Dates: start: 20220511
  3. INFLECTRA [Suspect]
     Active Substance: INFLIXIMAB-DYYB
     Dosage: 500 MG, EVERY 4 WEEKS
     Route: 042
     Dates: start: 20220706, end: 20220706
  4. INFLECTRA [Suspect]
     Active Substance: INFLIXIMAB-DYYB
     Dosage: 500 MG REINDUCTION WEEK 0 ,2, 6 THEN MAINTENANCE EVERY 8 WEEK
     Route: 042
     Dates: start: 20230308
  5. INFLECTRA [Suspect]
     Active Substance: INFLIXIMAB-DYYB
     Dosage: 500 MG ON WEEK 6 OF REINDUCTION
     Route: 042
     Dates: start: 20230425
  6. INFLECTRA [Suspect]
     Active Substance: INFLIXIMAB-DYYB
     Dosage: 500 MG REINDUCTION WEEK 0 ,2, 6 THEN MAINTENANCE EVERY 8 WEEK
     Route: 042
     Dates: start: 20230811
  7. INFLECTRA [Suspect]
     Active Substance: INFLIXIMAB-DYYB
     Dosage: 500 MG, EVERY 6 WEEKS FOR 12 MONTHS
     Route: 042
     Dates: start: 20230925
  8. INFLECTRA [Suspect]
     Active Substance: INFLIXIMAB-DYYB
     Dosage: 500 MG, 6 WEEKS AND 6 DAYS
     Route: 042
     Dates: start: 20230928
  9. INFLECTRA [Suspect]
     Active Substance: INFLIXIMAB-DYYB
     Dosage: 500 MG, EVERY 6 WEEKS
     Route: 042
     Dates: start: 20231114
  10. INFLECTRA [Suspect]
     Active Substance: INFLIXIMAB-DYYB
     Dosage: 500 MG, EVERY 6 WEEKS
     Route: 042
     Dates: start: 20231227
  11. AZATHIOPRINE [Concomitant]
     Active Substance: AZATHIOPRINE
     Dosage: 150 MG, DAILY
     Route: 048
  12. MERCAPTOPURINE [Concomitant]
     Active Substance: MERCAPTOPURINE
     Dosage: 400 MG, DAILY (FOR 2 WEEKS)
     Route: 048
  13. PURINETHOL [Concomitant]
     Active Substance: MERCAPTOPURINE
     Dosage: 100 MG, 1X/DAY (6MP)
     Route: 048

REACTIONS (6)
  - Gastrointestinal disorder [Unknown]
  - Condition aggravated [Recovering/Resolving]
  - Malaise [Not Recovered/Not Resolved]
  - Off label use [Unknown]
  - Off label use [Unknown]
  - Intentional product use issue [Unknown]

NARRATIVE: CASE EVENT DATE: 20181207
